FAERS Safety Report 6400606-4 (Version None)
Quarter: 2009Q4

REPORT INFORMATION
  Report Type: 
  Country: None (occurrence: None)
  Receive Date: 20091014
  Receipt Date: 20090930
  Transmission Date: 20100525
  Serious: Yes (Hospitalization)
  Sender: FDA-Public Use
  Company Number: PHHY2009KR42143

PATIENT
  Sex: Male
  Weight: 70 kg

DRUGS (1)
  1. ICL670A ICL+ [Suspect]
     Indication: APLASTIC ANAEMIA
     Dosage: UNK

REACTIONS (2)
  - OROPHARYNGEAL PAIN [None]
  - PYREXIA [None]
